FAERS Safety Report 19278153 (Version 1)
Quarter: 2021Q2

REPORT INFORMATION
  Report Type: Spontaneous
  Country: US (occurrence: US)
  Receive Date: 20210519
  Receipt Date: 20210519
  Transmission Date: 20210717
  Serious: Yes (Death)
  Sender: FDA-Public Use
  Company Number: None

PATIENT
  Age: 85 Year
  Sex: Male

DRUGS (15)
  1. ESCITALOPRAM [Concomitant]
     Active Substance: ESCITALOPRAM OXALATE
  2. PREDNISONE. [Concomitant]
     Active Substance: PREDNISONE
  3. ABIRATERONE ACETATE. [Suspect]
     Active Substance: ABIRATERONE ACETATE
     Indication: PROSTATE CANCER
     Route: 048
     Dates: start: 20201204, end: 20210426
  4. FENTANYL. [Concomitant]
     Active Substance: FENTANYL
  5. CLONAZEPAM. [Concomitant]
     Active Substance: CLONAZEPAM
  6. METOPROL TAR [Concomitant]
  7. TRAMADOL HCL [Concomitant]
     Active Substance: TRAMADOL HYDROCHLORIDE
  8. LEVOFLOXACIN. [Concomitant]
     Active Substance: LEVOFLOXACIN
  9. DEXAMETHASON [Concomitant]
     Active Substance: DEXAMETHASONE
  10. LORAZEPAM. [Concomitant]
     Active Substance: LORAZEPAM
  11. GABAPENTIN. [Concomitant]
     Active Substance: GABAPENTIN
  12. SMZ/TMP DS [Concomitant]
     Active Substance: SULFAMETHOXAZOLE\TRIMETHOPRIM
  13. FUROSEMIDE. [Concomitant]
     Active Substance: FUROSEMIDE
  14. MORPHINE SUL [Concomitant]
     Active Substance: MORPHINE SULFATE
  15. HYDROCO/APAP [Concomitant]
     Active Substance: ACETAMINOPHEN\HYDROCODONE

REACTIONS (1)
  - Death [None]

NARRATIVE: CASE EVENT DATE: 20210426
